FAERS Safety Report 4835372-7 (Version None)
Quarter: 2005Q4

REPORT INFORMATION
  Report Type: 
  Country: None (occurrence: None)
  Receive Date: 20051114
  Receipt Date: 20051025
  Transmission Date: 20060501
  Serious: Yes (Hospitalization, Other)
  Sender: FDA-Public Use
  Company Number: US_0506118247

PATIENT
  Age: 22 Year
  Sex: Male
  Weight: 136 kg

DRUGS (1)
  1. ZYPREXA [Suspect]
     Indication: SCHIZOPHRENIA
     Dosage: 10 MG
     Dates: start: 20020223

REACTIONS (18)
  - ALANINE AMINOTRANSFERASE INCREASED [None]
  - ANION GAP INCREASED [None]
  - BLOOD ALKALINE PHOSPHATASE INCREASED [None]
  - BLOOD CHLORIDE DECREASED [None]
  - CARBON DIOXIDE DECREASED [None]
  - DIABETES MELLITUS INSULIN-DEPENDENT [None]
  - DIABETES MELLITUS NON-INSULIN-DEPENDENT [None]
  - DIABETIC KETOACIDOSIS [None]
  - HALLUCINATION, AUDITORY [None]
  - HEADACHE [None]
  - HYPERKALAEMIA [None]
  - HYPONATRAEMIA [None]
  - OBESITY [None]
  - REFUSAL OF TREATMENT BY PATIENT [None]
  - RENAL FAILURE [None]
  - SUICIDAL IDEATION [None]
  - VISUAL DISTURBANCE [None]
  - WEIGHT INCREASED [None]
